FAERS Safety Report 25007677 (Version 1)
Quarter: 2025Q1

REPORT INFORMATION
  Report Type: Spontaneous
  Country: US (occurrence: US)
  Receive Date: 20250225
  Receipt Date: 20250225
  Transmission Date: 20250408
  Serious: No
  Sender: GLAXOSMITHKLINE
  Company Number: US-GSK-US2025019468

PATIENT
  Sex: Female

DRUGS (2)
  1. BENLYSTA [Suspect]
     Active Substance: BELIMUMAB
     Indication: Product used for unknown indication
  2. SAPHNELO [Concomitant]
     Active Substance: ANIFROLUMAB-FNIA

REACTIONS (6)
  - Pain in extremity [Unknown]
  - Arthralgia [Unknown]
  - Gait disturbance [Unknown]
  - Inflammation [Unknown]
  - Bone disorder [Unknown]
  - Loss of personal independence in daily activities [Unknown]
